FAERS Safety Report 8125886 (Version 2)
Quarter: 2019Q3

REPORT INFORMATION
  Report Type: Report from Study
  Country: DE (occurrence: DE)
  Receive Date: 20110908
  Receipt Date: 20190713
  Transmission Date: 20191005
  Serious: Yes (Hospitalization)
  Sender: FDA-Public Use
  Company Number: DE-UCBSA-037154

PATIENT
  Age: 40 Year
  Sex: Female
  Weight: 98 kg

DRUGS (2)
  1. INDOMET RETARD [Concomitant]
     Indication: AXIAL SPONDYLOARTHRITIS
     Dosage: 75 MG, 2X/DAY (BID)
     Route: 048
     Dates: start: 20100723, end: 201107
  2. CERTOLIZUMAB PEGOL VS PLACEBO [Suspect]
     Active Substance: CERTOLIZUMAB PEGOL
     Indication: AXIAL SPONDYLOARTHRITIS
     Dosage: NO OF DOSES RECIVED: 8
     Route: 058
     Dates: start: 20110317, end: 20110708

REACTIONS (1)
  - Cholelithiasis [Recovered/Resolved]

NARRATIVE: CASE EVENT DATE: 20110627
